FAERS Safety Report 5296270-0 (Version None)
Quarter: 2007Q2

REPORT INFORMATION
  Report Type: 
  Country: None (occurrence: None)
  Receive Date: 20070413
  Receipt Date: 20070403
  Transmission Date: 20071010
  Serious: Yes (Hospitalization)
  Sender: FDA-Public Use
  Company Number: AU-JNJFOC-20070400883

PATIENT
  Age: 12 Year
  Sex: Male
  Weight: 56 kg

DRUGS (2)
  1. PARACETAMOL [Suspect]
     Indication: PYREXIA
  2. PARACETAMOL [Suspect]
     Indication: PAIN
     Dosage: TWO TABLETS EVERY FOUR HOURS (6000 MG/DAY) OVER THE PREVIOUS FOUR DAYS

REACTIONS (6)
  - ACCIDENTAL OVERDOSE [None]
  - ALANINE AMINOTRANSFERASE INCREASED [None]
  - ASPARTATE AMINOTRANSFERASE INCREASED [None]
  - DRUG INEFFECTIVE [None]
  - HEPATIC FUNCTION ABNORMAL [None]
  - THROMBOCYTOPENIA [None]
